FAERS Safety Report 14524282 (Version 3)
Quarter: 2018Q2

REPORT INFORMATION
  Report Type: Spontaneous
  Country: US (occurrence: US)
  Receive Date: 20180213
  Receipt Date: 20180607
  Transmission Date: 20180711
  Serious: Yes (Other)
  Sender: FDA-Public Use
  Company Number: US-PFIZER INC-2018057231

PATIENT
  Age: 46 Year
  Sex: Female

DRUGS (1)
  1. XELJANZ [Suspect]
     Active Substance: TOFACITINIB CITRATE
     Indication: RHEUMATOID ARTHRITIS
     Dosage: 5 MG, 2X/DAY
     Dates: start: 2016

REACTIONS (4)
  - Staphylococcal infection [Not Recovered/Not Resolved]
  - Herpes zoster [Unknown]
  - Groin infection [Not Recovered/Not Resolved]
  - Folliculitis [Unknown]

NARRATIVE: CASE EVENT DATE: 201612
